FAERS Safety Report 6537489-8 (Version None)
Quarter: 2010Q1

REPORT INFORMATION
  Report Type: 
  Country: None (occurrence: None)
  Receive Date: 20100110
  Receipt Date: 20091230
  Transmission Date: 20100710
  Serious: Yes (Other)
  Sender: FDA-Public Use
  Company Number: 1000011024

PATIENT
  Age: 39 Year
  Sex: Male

DRUGS (1)
  1. CITALOPRAM HYDROBROMIDE [Suspect]
     Indication: ANXIETY
     Dosage: (20 MG), ORAL
     Route: 048
     Dates: start: 20090924, end: 20090924

REACTIONS (10)
  - CONVULSION [None]
  - DIZZINESS [None]
  - DYSPNOEA [None]
  - GAIT DISTURBANCE [None]
  - GASTRITIS [None]
  - HEADACHE [None]
  - HEPATIC STEATOSIS [None]
  - HYPOAESTHESIA FACIAL [None]
  - OFF LABEL USE [None]
  - PAIN [None]
